FAERS Safety Report 7355866-2 (Version None)
Quarter: 2011Q1

REPORT INFORMATION
  Report Type: 
  Country: None (occurrence: None)
  Receive Date: 20110316
  Receipt Date: 20101129
  Transmission Date: 20110831
  Serious: Yes (Other)
  Sender: FDA-Public Use
  Company Number: EC-GILEAD-2009-0021760

PATIENT
  Age: 26 Year
  Sex: Male
  Weight: 70.5 kg

DRUGS (1)
  1. EMTRICITABINE/TENOFOVIR DISOPROXIL FUMARATE [Suspect]
     Indication: HIV INFECTION
     Route: 048
     Dates: start: 20080729

REACTIONS (1)
  - BLOOD PHOSPHORUS DECREASED [None]
